FAERS Safety Report 8034702 (Version 3)
Quarter: 2013Q4

REPORT INFORMATION
  Report Type: Report from Study
  Country: MX (occurrence: MX)
  Receive Date: 20110714
  Receipt Date: 20131007
  Transmission Date: 20140711
  Serious: Yes (Hospitalization, Other)
  Sender: FDA-Public Use
  Company Number: PHHY2011MX59366

PATIENT
  Age: 75 Year
  Sex: Female

DRUGS (2)
  1. CO-DIOVAN [Suspect]
     Dosage: 1 DF DAILY, (160MG VALS AND 25 MG HYDR) DAILY
     Route: 048
     Dates: start: 200306
  2. GLUCOPHAGE [Concomitant]
     Dosage: 1 DF, DAILY
     Route: 048
     Dates: start: 20110601

REACTIONS (3)
  - Eye haemorrhage [Recovering/Resolving]
  - Blindness [Recovering/Resolving]
  - Diabetes mellitus [Unknown]
